FAERS Safety Report 25829583 (Version 1)
Quarter: 2025Q3

REPORT INFORMATION
  Report Type: Spontaneous
  Country: EU (occurrence: EU)
  Receive Date: 20250922
  Receipt Date: 20250922
  Transmission Date: 20251021
  Serious: Yes (Other)
  Sender: AMGEN
  Company Number: None

PATIENT
  Age: 27 Year
  Sex: Female

DRUGS (2)
  1. NEUPOGEN [Suspect]
     Active Substance: FILGRASTIM
     Indication: Haematopoietic stem cell mobilisation
     Dosage: 0.4 MILLILITER, QD (1-0-0)
     Route: 065
     Dates: start: 20250724, end: 20250728
  2. NEUPOGEN [Suspect]
     Active Substance: FILGRASTIM
     Route: 065
     Dates: start: 20250724, end: 20250727

REACTIONS (6)
  - Haematochezia [Recovered/Resolved]
  - Fatigue [Recovered/Resolved]
  - Somnolence [Recovered/Resolved]
  - Dysaesthesia [Recovered/Resolved]
  - Malaise [Recovered/Resolved]
  - Lymphadenopathy [Recovered/Resolved]

NARRATIVE: CASE EVENT DATE: 20250729
